FAERS Safety Report 26024053 (Version 1)
Quarter: 2025Q4

REPORT INFORMATION
  Report Type: Spontaneous
  Country: EU (occurrence: None)
  Receive Date: 20251111
  Receipt Date: 20251111
  Transmission Date: 20260118
  Serious: Yes (Hospitalization, Other)
  Sender: ENDO
  Company Number: EU-ENDO USA, INC.-2025-002238

PATIENT
  Age: 46 Year
  Sex: Male

DRUGS (14)
  1. ETOMIDATE [Suspect]
     Active Substance: ETOMIDATE
     Indication: Induction of anaesthesia
     Dosage: 20 MILLIGRAM (0.3MG/KG), UNKNOWN (ADMINISTERED AT THE 10TH ECT SESSION)
     Route: 065
  2. ETOMIDATE [Suspect]
     Active Substance: ETOMIDATE
     Indication: Electroconvulsive therapy
     Dosage: 10 MILLIGRAM, UNKNOWN (DURING SPONTANEOUS SEIZURE)
     Route: 065
  3. BUPROPION HYDROCHLORIDE [Suspect]
     Active Substance: BUPROPION HYDROCHLORIDE
     Indication: Depression
     Dosage: 150 MILLIGRAM, UNKNOWN
     Route: 065
  4. BUPROPION HYDROCHLORIDE [Suspect]
     Active Substance: BUPROPION HYDROCHLORIDE
     Dosage: 300 MILLIGRAM, UNKNOWN
     Route: 065
  5. TRAZODONE [Concomitant]
     Active Substance: TRAZODONE HYDROCHLORIDE
     Indication: Product used for unknown indication
     Dosage: 150 MILLIGRAM, UNKNOWN
     Route: 065
  6. OLANZAPINE [Concomitant]
     Active Substance: OLANZAPINE
     Indication: Antipsychotic therapy
     Dosage: UNK UNKNOWN, UNKNOWN
     Route: 065
  7. OLANZAPINE [Concomitant]
     Active Substance: OLANZAPINE
     Dosage: UNK UNKNOWN, UNKNOWN (TAPERED DOSE)
     Route: 065
  8. ESKETAMINE [Concomitant]
     Active Substance: ESKETAMINE
     Indication: Antidepressant therapy
     Dosage: UNK UNKNOWN, UNKNOWN
  9. SUCCINYLCHOLINE [Concomitant]
     Active Substance: SUCCINYLCHOLINE
     Indication: Induction of anaesthesia
     Dosage: 70 MILLIGRAM (1 MG/KG), UNKNOWN
     Route: 065
  10. SUCCINYLCHOLINE [Concomitant]
     Active Substance: SUCCINYLCHOLINE
     Indication: Electroconvulsive therapy
     Dosage: 80 MILLIGRAM, UNKNOWN (DURING SPONTANEOUS SEIZURE)
     Route: 065
  11. THIOPENTAL [Concomitant]
     Active Substance: THIOPENTAL
     Indication: Induction of anaesthesia
     Dosage: 400 MILLIGRAM (5.6 MG/KG), UNKNOWN
     Route: 065
  12. THIOPENTAL [Concomitant]
     Active Substance: THIOPENTAL
     Indication: Electroconvulsive therapy
     Dosage: 400 MILLIGRAM, UNKNOWN (SWITCHED BACK FROM ETOMIDATE)
     Route: 065
  13. FLUMAZENIL [Concomitant]
     Active Substance: FLUMAZENIL
     Indication: Convulsive threshold lowered
     Dosage: 0.5 MILLIGRAM, UNKNOWN
     Route: 065
  14. PROPOFOL [Concomitant]
     Active Substance: PROPOFOL
     Indication: Product used for unknown indication
     Dosage: 40 MILLIGRAM, UNKNOWN
     Route: 065

REACTIONS (3)
  - Epilepsy [Recovered/Resolved]
  - Cerebral disorder [Unknown]
  - Drug interaction [Recovered/Resolved]
